FAERS Safety Report 25129526 (Version 1)
Quarter: 2025Q1

REPORT INFORMATION
  Report Type: Spontaneous
  Country: US (occurrence: None)
  Receive Date: 20250327
  Receipt Date: 20250327
  Transmission Date: 20250409
  Serious: Yes (Other)
  Sender: FDA-CTU
  Company Number: None

PATIENT
  Sex: Female

DRUGS (11)
  1. XOLAIR [Suspect]
     Active Substance: OMALIZUMAB
     Indication: Idiopathic urticaria
     Dosage: FREQUENCY : MONTHLY;?
     Route: 058
     Dates: start: 20250116
  2. CALCIUM FOR CHW WOMEN [Concomitant]
  3. COD LIVER OIL [Concomitant]
     Active Substance: COD LIVER OIL
  4. FOLIC ACID TAB1MG [Concomitant]
  5. IBUPROFEN TAB 600MG [Concomitant]
  6. MAGNESIUM TAB 250MG [Concomitant]
  7. METHIMAZOLE TAB 5MG [Concomitant]
  8. MULTIVITAMIN TAB WOMENS [Concomitant]
  9. PREDNISONE [Concomitant]
     Active Substance: PREDNISONE
  10. PROAIR RESPICLICK [Concomitant]
     Active Substance: ALBUTEROL SULFATE
  11. SUPERB- CAP COMPLEX [Concomitant]

REACTIONS (1)
  - Graves^ disease [None]
